FAERS Safety Report 7070983-2 (Version None)
Quarter: 2010Q4

REPORT INFORMATION
  Report Type: 
  Country: None (occurrence: None)
  Receive Date: 20101029
  Receipt Date: 20101018
  Transmission Date: 20110411
  Serious: Yes (Hospitalization)
  Sender: FDA-Public Use
  Company Number: CA-JNJFOC-20101005275

PATIENT
  Sex: Female
  Weight: 86 kg

DRUGS (13)
  1. REMICADE [Suspect]
     Indication: RHEUMATOID ARTHRITIS
     Route: 042
  2. METFORMIN [Concomitant]
  3. ACID FOLIC [Concomitant]
  4. OMEPRAZOLE [Concomitant]
  5. RAMIPRIL [Concomitant]
  6. CRESTOR [Concomitant]
  7. BIOTENE [Concomitant]
     Dosage: AS NEEDED
  8. VENLAFAXINE HCL EXTENDED-RELEASE [Concomitant]
  9. CELEBREX [Concomitant]
  10. CYCLOBENZAPRINE [Concomitant]
  11. MURO 128 [Concomitant]
     Dosage: 1 APPLICATION AT BEDTIME FOR 3 MONTHS
  12. ATASOL COMPOUND [Concomitant]
     Dosage: 1 EVERY 4 HOURS AS NEEDED
  13. HYDROXYQUINOLINE [Concomitant]

REACTIONS (1)
  - TOE OPERATION [None]
